FAERS Safety Report 20059905 (Version 1)
Quarter: 2021Q4

REPORT INFORMATION
  Report Type: Other
  Country: None (occurrence: NG)
  Receive Date: 20211111
  Receipt Date: 20211111
  Transmission Date: 20220303
  Serious: Yes (Death)
  Sender: FDA-Public Use
  Company Number: NG-Jacobus Pharmaceutical Company, Inc.-2121770

PATIENT
  Age: 42 Year
  Sex: Male

DRUGS (6)
  1. PASER [Suspect]
     Active Substance: AMINOSALICYLIC ACID
     Indication: Tuberculosis
  2. PYRAZINAMIDE [Concomitant]
     Active Substance: PYRAZINAMIDE
  3. ISONIAZID [Concomitant]
     Active Substance: ISONIAZID
  4. CLOFAZIMINE [Concomitant]
     Active Substance: CLOFAZIMINE
  5. BEDAQUILINE [Concomitant]
     Active Substance: BEDAQUILINE
  6. MOXIFLOXACIN [Concomitant]
     Active Substance: MOXIFLOXACIN

REACTIONS (1)
  - Transaminases increased [Fatal]
